FAERS Safety Report 25595713 (Version 1)
Quarter: 2025Q3

REPORT INFORMATION
  Report Type: Report from Study
  Country: CA (occurrence: CA)
  Receive Date: 20250723
  Receipt Date: 20250723
  Transmission Date: 20251021
  Serious: Yes (Other)
  Sender: TAKEDA
  Company Number: CA-TAKEDA-2024TUS080851

PATIENT
  Sex: Male

DRUGS (11)
  1. VEDOLIZUMAB [Suspect]
     Active Substance: VEDOLIZUMAB
     Indication: Colitis ulcerative
  2. VEDOLIZUMAB [Suspect]
     Active Substance: VEDOLIZUMAB
  3. VEDOLIZUMAB [Suspect]
     Active Substance: VEDOLIZUMAB
  4. TRINTELLIX [Concomitant]
     Active Substance: VORTIOXETINE HYDROBROMIDE
  5. SYMBICORT [Concomitant]
     Active Substance: BUDESONIDE\FORMOTEROL FUMARATE DIHYDRATE
  6. RUPATADINE FUMARATE [Concomitant]
     Active Substance: RUPATADINE FUMARATE
  7. STRATTERA [Concomitant]
     Active Substance: ATOMOXETINE HYDROCHLORIDE
  8. FLUTICASONE FUROATE [Concomitant]
     Active Substance: FLUTICASONE FUROATE
  9. BETADERM [Concomitant]
     Active Substance: BETAMETHASONE VALERATE
     Indication: Eczema
  10. Prevex hc [Concomitant]
     Indication: Lip dry
  11. MESALAMINE [Concomitant]
     Active Substance: MESALAMINE

REACTIONS (6)
  - Haematochezia [Recovered/Resolved]
  - Oral fungal infection [Unknown]
  - Ligament sprain [Recovered/Resolved]
  - Mucous stools [Recovered/Resolved]
  - Abdominal pain [Recovered/Resolved]
  - Oral candidiasis [Recovered/Resolved]
